FAERS Safety Report 6731155-1 (Version None)
Quarter: 2010Q2

REPORT INFORMATION
  Report Type: 
  Country: None (occurrence: None)
  Receive Date: 20100518
  Receipt Date: 20100505
  Transmission Date: 20101027
  Serious: Yes (Hospitalization, Disabling)
  Sender: FDA-Public Use
  Company Number: US-ELI_LILLY_AND_COMPANY-US200911005514

PATIENT
  Sex: Male
  Weight: 83.9 kg

DRUGS (29)
  1. ZYPREXA [Suspect]
     Indication: BIPOLAR DISORDER
     Dosage: 10 MG, DAILY (1/D)
     Dates: start: 20040101
  2. ZYPREXA [Suspect]
     Dosage: 15 MG, EACH EVENING
  3. ZYPREXA [Suspect]
     Dosage: 5 MG, EACH EVENING
  4. ZYPREXA [Suspect]
     Dosage: 2.5 MG, EACH EVENING
     Dates: end: 20090601
  5. CYMBALTA [Concomitant]
     Dosage: 60 MG, DAILY (1/D)
  6. CYMBALTA [Concomitant]
     Dosage: 60 MG, DAILY (1/D)
  7. STRATTERA [Concomitant]
     Dosage: 80 MG, DAILY (1/D)
  8. SEROQUEL [Concomitant]
     Dosage: 300 MG, EACH EVENING
     Dates: start: 20090701
  9. GEODON [Concomitant]
     Dosage: 180 MG, EACH EVENING
     Dates: start: 20090701
  10. GEODON [Concomitant]
     Dosage: 80 MG, EACH EVENING
  11. ALCOHOL [Concomitant]
  12. NICOTINE [Concomitant]
  13. XANAX [Concomitant]
     Dosage: 0.5 MG, DAILY (1/D)
  14. XANAX [Concomitant]
     Dosage: 1 MG, DAILY (1/D)
  15. CHANTIX                            /05703001/ [Concomitant]
     Dosage: 1 MG, 2/D
  16. TRAZODONE HCL [Concomitant]
     Dosage: 100 MG, EACH EVENING
  17. NEXIUM [Concomitant]
     Dosage: 40 MG, DAILY (1/D)
  18. CITALOPRAM HYDROBROMIDE [Concomitant]
     Dosage: 40 MG, DAILY (1/D)
  19. LEXAPRO [Concomitant]
     Dosage: 10 MG, DAILY (1/D)
  20. PEGINTERFERON ALFA-2A [Concomitant]
  21. RIBAVIRIN [Concomitant]
  22. AMBIEN [Concomitant]
     Dosage: 10 MG, EACH EVENING
  23. ELAVIL [Concomitant]
     Dosage: 25 MG, EACH EVENING
  24. EFFEXOR [Concomitant]
     Dosage: 150 MG, UNK
  25. ZOLOFT [Concomitant]
     Dosage: 50 MG, EACH MORNING
  26. ZOLOFT [Concomitant]
     Dosage: 100 MG, DAILY (1/D)
  27. LUNESTA [Concomitant]
     Dosage: 2 MG, EACH EVENING
  28. WELLBUTRIN SR [Concomitant]
     Dosage: 150 MG, DAILY (1/D)
  29. WELLBUTRIN SR [Concomitant]
     Dosage: 150 MG, 2/D

REACTIONS (10)
  - ABDOMINAL DISTENSION [None]
  - ALCOHOLIC PANCREATITIS [None]
  - ASCITES [None]
  - BLOOD CHOLESTEROL ABNORMAL [None]
  - BLOOD TRIGLYCERIDES INCREASED [None]
  - DIABETES MELLITUS [None]
  - DISEASE COMPLICATION [None]
  - HYPERBILIRUBINAEMIA [None]
  - PANCREATIC PSEUDOCYST [None]
  - WEIGHT INCREASED [None]
